FAERS Safety Report 9352405 (Version 2)
Quarter: 2013Q3

REPORT INFORMATION
  Report Type: Report from Study
  Country: US (occurrence: US)
  Receive Date: 20130617
  Receipt Date: 20130912
  Transmission Date: 20140515
  Serious: Yes (Other)
  Sender: FDA-Public Use
  Company Number: US-ELI_LILLY_AND_COMPANY-US201207006812

PATIENT
  Age: 49 Year
  Sex: Female
  Weight: 52.61 kg

DRUGS (3)
  1. TERIPARATIDE [Suspect]
     Indication: OSTEOPOROSIS
     Dosage: 20 UG, QD
  2. TERIPARATIDE [Suspect]
     Indication: BONE LOSS
     Dosage: 20 UG, QD
     Dates: start: 201207
  3. TERIPARATIDE [Suspect]
     Indication: FRACTURE

REACTIONS (3)
  - Cerebrovascular accident [Recovered/Resolved]
  - Foot fracture [Unknown]
  - Wrist fracture [Unknown]
